FAERS Safety Report 6803379-6 (Version None)
Quarter: 2010Q2

REPORT INFORMATION
  Report Type: 
  Country: None (occurrence: None)
  Receive Date: 20100628
  Receipt Date: 20100618
  Transmission Date: 20101027
  Serious: Yes (Other)
  Sender: FDA-Public Use
  Company Number: US-PFIZER INC-2010077317

PATIENT
  Sex: Female
  Weight: 50.8 kg

DRUGS (4)
  1. AMLODIPINE BESYLATE [Suspect]
     Indication: HYPERTENSION
     Dosage: 5 MG, DAILY
     Route: 048
     Dates: start: 20100101
  2. AMLODIPINE BESYLATE [Suspect]
     Indication: VASCULAR GRAFT
     Dosage: 2.5 MG, 1X/DAY
     Route: 048
     Dates: start: 20100301
  3. METOPROLOL [Concomitant]
     Dosage: UNK
  4. ACETYLSALICYLIC ACID [Concomitant]
     Dosage: UNK

REACTIONS (3)
  - FATIGUE [None]
  - OSTEOPENIA [None]
  - OSTEOPOROSIS [None]
